FAERS Safety Report 25375253 (Version 2)
Quarter: 2025Q2

REPORT INFORMATION
  Report Type: Spontaneous
  Country: CN (occurrence: CN)
  Receive Date: 20250529
  Receipt Date: 20250605
  Transmission Date: 20250717
  Serious: Yes (Hospitalization)
  Sender: TAKEDA
  Company Number: CN-JNJFOC-20250531794

PATIENT
  Age: 65 Year
  Sex: Female
  Weight: 48 kg

DRUGS (6)
  1. DEXAMETHASONE [Suspect]
     Active Substance: DEXAMETHASONE
     Indication: Plasma cell myeloma
  2. BORTEZOMIB [Suspect]
     Active Substance: BORTEZOMIB
     Indication: Product used for unknown indication
     Dosage: 2 MILLIGRAM, QD
     Dates: start: 20250423, end: 20250423
  3. DARATUMUMAB [Suspect]
     Active Substance: DARATUMUMAB
     Indication: Plasma cell myeloma
     Dosage: 400 MILLIGRAM, QD
     Dates: start: 20250423, end: 20250423
  4. DARATUMUMAB [Suspect]
     Active Substance: DARATUMUMAB
     Dosage: 800 MILLIGRAM, QD
     Dates: start: 20250423
  5. LENALIDOMIDE [Suspect]
     Active Substance: LENALIDOMIDE
     Indication: Plasma cell myeloma
  6. SODIUM CHLORIDE [Concomitant]
     Active Substance: SODIUM CHLORIDE
     Indication: Plasma cell myeloma
     Dosage: 500 MILLILITER, QD
     Dates: start: 20250423, end: 20250423

REACTIONS (1)
  - Myelosuppression [Recovering/Resolving]

NARRATIVE: CASE EVENT DATE: 20250430
